FAERS Safety Report 13516957 (Version 4)
Quarter: 2017Q3

REPORT INFORMATION
  Report Type: Spontaneous
  Country: US (occurrence: US)
  Receive Date: 20170505
  Receipt Date: 20170829
  Transmission Date: 20171127
  Serious: No
  Sender: FDA-Public Use
  Company Number: US-PFIZER INC-2017142354

PATIENT
  Age: 93 Year
  Sex: Female
  Weight: 67.57 kg

DRUGS (3)
  1. IBRANCE [Suspect]
     Active Substance: PALBOCICLIB
     Dosage: 100 MG, CYCLIC (DAY 1- DAY 21 AND 7 DAYS OFF, EVERY 28 DAYS)
     Route: 048
     Dates: start: 20170303
  2. IBRANCE [Suspect]
     Active Substance: PALBOCICLIB
     Indication: BREAST CANCER METASTATIC
     Dosage: 125 MG, CYCLIC (DAY 1- DAY 21 AND 7 DAYS OFF, EVERY 28 DAYS)
     Route: 048
     Dates: start: 20170303
  3. IBRANCE [Suspect]
     Active Substance: PALBOCICLIB
     Dosage: 100 MG, CYCLIC (DAILY FOR 21 DAYS/7 DAYS OFF)
     Route: 048
     Dates: start: 20170303, end: 20170823

REACTIONS (7)
  - Confusional state [Unknown]
  - Neoplasm progression [Unknown]
  - Scab [Unknown]
  - Blood glucose fluctuation [Recovering/Resolving]
  - Product packaging quantity issue [Unknown]
  - Drug dispensing error [Unknown]
  - Skin haemorrhage [Unknown]

NARRATIVE: CASE EVENT DATE: 20170823
